FAERS Safety Report 21392475 (Version 1)
Quarter: 2022Q3

REPORT INFORMATION
  Report Type: Report from Study
  Country: US (occurrence: US)
  Receive Date: 20220929
  Receipt Date: 20220929
  Transmission Date: 20221026
  Serious: Yes (Hospitalization, Other)
  Sender: FDA-Public Use
  Company Number: US-ABBVIE-4132267

PATIENT
  Age: 67 Year
  Sex: Male
  Weight: 84.4 kg

DRUGS (1)
  1. VENCLEXTA [Suspect]
     Active Substance: VENETOCLAX
     Indication: Product used for unknown indication

REACTIONS (6)
  - COVID-19 pneumonia [Recovered/Resolved]
  - Crepitations [Unknown]
  - Pneumothorax [Recovered/Resolved]
  - Peripheral swelling [Unknown]
  - Hypoaesthesia [Unknown]
  - Paraesthesia [Unknown]

NARRATIVE: CASE EVENT DATE: 20220201
